FAERS Safety Report 8839935 (Version 2)
Quarter: 2012Q4

REPORT INFORMATION
  Report Type: 
  Country: US (occurrence: US)
  Receive Date: 20121015
  Receipt Date: 20121217
  Transmission Date: 20130627
  Serious: Yes (Hospitalization, Other)
  Sender: FDA-Public Use
  Company Number: US-BAYER-2012-107289

PATIENT
  Age: 69 Year
  Sex: Male
  Weight: 81 kg

DRUGS (31)
  1. TRASYLOL [Suspect]
     Indication: CORONARY ARTERY BYPASS GRAFT
     Dosage: Test dose: 1mL and 200mL cardiopulmonary bypass
     Dates: start: 20030524
  2. TRASYLOL [Suspect]
     Indication: CORONARY ARTERY BYPASS GRAFT
     Dosage: Loading dose: 200mL load followed by 50mL continuous infusion
     Dates: start: 20030524
  3. ZOCOR [Concomitant]
     Dosage: 40 mg, at bedtime
  4. PLAVIX [Concomitant]
     Dosage: 75 mg, daily
  5. DIOVAN [Concomitant]
     Dosage: 80 mg, daily
  6. HUMALOG [INSULIN] [Concomitant]
  7. ACETYLSALICYLIC ACID (} 100 MG) [Concomitant]
  8. VITAMIN E [Concomitant]
  9. LASIX [Concomitant]
  10. CELL SAVER [Concomitant]
  11. PACKED RED BLOOD CELLS [Concomitant]
  12. FORANE [Concomitant]
     Dosage: UNK
     Dates: start: 20030524, end: 20030524
  13. FENTANYL [Concomitant]
     Dosage: UNK
     Dates: start: 20030524, end: 20030524
  14. VERSED [Concomitant]
     Dosage: UNK
     Dates: start: 20030524, end: 20030524
  15. VECURONIUM [Concomitant]
     Dosage: UNK
     Dates: start: 20030524, end: 20030524
  16. DOBUTREX [Concomitant]
     Dosage: UNK
     Dates: start: 20030524
  17. VASOPRESSIN [Concomitant]
     Dosage: UNK
     Dates: start: 20030524, end: 20030524
  18. NITROGLYCERIN [Concomitant]
     Dosage: UNK
     Dates: start: 20030524
  19. SUCCINYLCHOLINE CHLORIDE [Concomitant]
     Dosage: UNK
  20. SODIUM THIOPENTAL MITSUBISHI [Concomitant]
     Dosage: UNK
     Dates: start: 20030524, end: 20030524
  21. CALCIUM CHLORIDE [Concomitant]
     Dosage: UNK
     Dates: start: 20030524, end: 20030524
  22. HEPARIN [Concomitant]
     Dosage: UNK
     Dates: start: 20030524, end: 20030524
  23. EPHEDRINE [Concomitant]
     Dosage: UNK
     Dates: start: 20030524, end: 20030524
  24. PROTAMINE [Concomitant]
     Dosage: UNK
     Dates: start: 20030524, end: 20030524
  25. REGULAR INSULIN [Concomitant]
     Dosage: UNK
     Dates: start: 20030524, end: 20030524
  26. SODIUM BICARBONATE [Concomitant]
     Dosage: UNK
     Dates: start: 20030524, end: 20030524
  27. MANNITOL [Concomitant]
     Dosage: UNK
     Dates: start: 20030524, end: 20030524
  28. CEFUROXIME [Concomitant]
     Dosage: UNK
     Dates: start: 20030524, end: 20030524
  29. LIDOCAINE [Concomitant]
     Dosage: UNK
     Dates: start: 20030524, end: 20030524
  30. MAGNESIUM SULFATE [Concomitant]
     Dosage: UNK
     Dates: start: 20030524, end: 20030524
  31. NEOSYNEPHRINE [Concomitant]
     Dosage: UNK
     Dates: start: 20030524

REACTIONS (2)
  - Renal failure acute [None]
  - Renal failure chronic [None]
